FAERS Safety Report 8508259-6 (Version None)
Quarter: 2012Q2

REPORT INFORMATION
  Report Type: 
  Country: None (occurrence: None)
  Receive Date: 20120405
  Receipt Date: 20080505
  Transmission Date: 20120825
  Serious: Yes (Hospitalization)
  Sender: FDA-Public Use
  Company Number: PHEH2008US04343

PATIENT
  Age: 84 Year
  Sex: Female
  Weight: 85.7 kg

DRUGS (5)
  1. WARFARIN SODIUM [Concomitant]
  2. RECLAST [Suspect]
     Indication: OSTEOPOROSIS
     Dosage: 5 MG, ONCE/SINGLE, INFUSION
     Dates: start: 20080415
  3. ZAROXOLYN [Concomitant]
  4. DIGOXIN [Suspect]
  5. LASIX [Concomitant]

REACTIONS (10)
  - TOXICITY TO VARIOUS AGENTS [None]
  - RENAL FAILURE ACUTE [None]
  - VOMITING [None]
  - DEHYDRATION [None]
  - BLOOD CREATININE INCREASED [None]
  - NAUSEA [None]
  - BLOOD UREA INCREASED [None]
  - INFLUENZA LIKE ILLNESS [None]
  - FATIGUE [None]
  - BACK PAIN [None]
